FAERS Safety Report 15101757 (Version 1)
Quarter: 2018Q2

REPORT INFORMATION
  Report Type: Spontaneous
  Country: US (occurrence: US)
  Receive Date: 20180611
  Receipt Date: 20180611
  Transmission Date: 20180711
  Serious: Yes (Hospitalization)
  Sender: FDA-Public Use
  Company Number: None

PATIENT
  Age: 72 Year
  Sex: Female
  Weight: 58.5 kg

DRUGS (3)
  1. PANTAPROZOLE [Concomitant]
     Active Substance: PANTOPRAZOLE SODIUM
  2. GABAPENTIN 300MG [Suspect]
     Active Substance: GABAPENTIN
     Indication: NEURALGIA
     Dosage: ?          QUANTITY:300 DF DOSAGE FORM;?
     Route: 048
     Dates: start: 20180319
  3. LOSARTAN. [Concomitant]
     Active Substance: LOSARTAN

REACTIONS (8)
  - Nausea [None]
  - Vertigo [None]
  - Vomiting [None]
  - Dizziness [None]
  - Blood pressure inadequately controlled [None]
  - Withdrawal syndrome [None]
  - Tremor [None]
  - Hot flush [None]

NARRATIVE: CASE EVENT DATE: 20180420
